FAERS Safety Report 19081008 (Version 1)
Quarter: 2021Q1

REPORT INFORMATION
  Report Type: Spontaneous
  Country: US (occurrence: US)
  Receive Date: 20210331
  Receipt Date: 20210331
  Transmission Date: 20210420
  Serious: No
  Sender: FDA-Public Use
  Company Number: US-INCYTE CORPORATION-2021IN002463

PATIENT

DRUGS (2)
  1. JAKAFI [Suspect]
     Active Substance: RUXOLITINIB
     Dosage: 15 MILLIGRAM, QD
     Route: 048
     Dates: start: 20200522
  2. JAKAFI [Suspect]
     Active Substance: RUXOLITINIB
     Dosage: 10MG AM AND 5MG PM (BID)
     Route: 048
     Dates: start: 201809

REACTIONS (1)
  - Product availability issue [Unknown]
